FAERS Safety Report 7067305-X (Version None)
Quarter: 2010Q4

REPORT INFORMATION
  Report Type: 
  Country: None (occurrence: None)
  Receive Date: 20101022
  Receipt Date: 20101022
  Transmission Date: 20110411
  Serious: Yes (Life-Threatening)
  Sender: FDA-Public Use
  Company Number: None

PATIENT
  Age: 38 Year
  Sex: Female
  Weight: 65.7716 kg

DRUGS (1)
  1. TRAMADOL HCL [Suspect]
     Indication: ARTHRITIS
     Dosage: 1 PILL EVERY EVENING PO
     Route: 048
     Dates: start: 20101020, end: 20101020

REACTIONS (13)
  - BALANCE DISORDER [None]
  - FEELING ABNORMAL [None]
  - FEELING JITTERY [None]
  - HYPERHIDROSIS [None]
  - HYPERTENSION [None]
  - MIDDLE INSOMNIA [None]
  - NAUSEA [None]
  - PALPITATIONS [None]
  - PRESYNCOPE [None]
  - TACHYCARDIA [None]
  - TREMOR [None]
  - VISION BLURRED [None]
  - VOMITING [None]
